FAERS Safety Report 6828680-1 (Version None)
Quarter: 2010Q3

REPORT INFORMATION
  Report Type: 
  Country: None (occurrence: None)
  Receive Date: 20100706
  Receipt Date: 20100622
  Transmission Date: 20110219
  Serious: Yes (Hospitalization)
  Sender: FDA-Public Use
  Company Number: 003576

PATIENT
  Sex: Female

DRUGS (17)
  1. CERTOLIZUMAB PEGOL (CERTOLIZUMAB PEGOL) [Suspect]
     Indication: RHEUMATOID ARTHRITIS
     Dosage: 200 MG 1X2, SUBCUTANEOUS
     Route: 058
     Dates: start: 20091001, end: 20100527
  2. METHOTREXATE [Concomitant]
  3. LOXOPROFEN SODIUM [Concomitant]
  4. CANDESARTAN CILEXETIL [Concomitant]
  5. DICLOFENAC SODIUM [Concomitant]
  6. RABEPRAZOLE SODIUM [Concomitant]
  7. REBAMIPIDE [Concomitant]
  8. MOSAPRIDE [Concomitant]
  9. SCOPOLAMINE [Concomitant]
  10. TIQUIZIUM BROMIDE [Concomitant]
  11. FOLIC ACID [Concomitant]
  12. CELECOXIB [Concomitant]
  13. PREDNISOLONE [Concomitant]
  14. KETOPROFEN [Concomitant]
  15. ISONIAZID [Concomitant]
  16. VALPROATE SODIUM [Concomitant]
  17. BETAMETHASONE [Concomitant]

REACTIONS (7)
  - BRAIN OEDEMA [None]
  - CONTUSION [None]
  - FALL [None]
  - INTRACRANIAL ANEURYSM [None]
  - MENINGIOMA BENIGN [None]
  - SWELLING [None]
  - TUMOUR NECROSIS [None]
